FAERS Safety Report 16438092 (Version 2)
Quarter: 2019Q3

REPORT INFORMATION
  Report Type: Report from Study
  Country: AT (occurrence: AT)
  Receive Date: 20190617
  Receipt Date: 20190701
  Transmission Date: 20191004
  Serious: Yes (Hospitalization)
  Sender: FDA-Public Use
  Company Number: AT-ROCHE-2336016

PATIENT
  Age: 72 Year
  Sex: Male
  Weight: 83 kg

DRUGS (10)
  1. OBINUTUZUMAB. [Suspect]
     Active Substance: OBINUTUZUMAB
     Indication: CHRONIC LYMPHOCYTIC LEUKAEMIA
     Dosage: 900 MG ON DAY 2, 1000 MG ON DAY AND DAY 15 OF 28 DAY CYCLE,?MOST RECENT DOSE ON 07/MAY/2019 (1000 MG
     Route: 042
     Dates: start: 20181212
  2. IBRUTINIB [Suspect]
     Active Substance: IBRUTINIB
     Indication: CHRONIC LYMPHOCYTIC LEUKAEMIA
     Dosage: MOST RECENT DOSE ON 07/JUN/2019 (280 MG)
     Route: 048
     Dates: start: 20181212
  3. VENETOCLAX. [Suspect]
     Active Substance: VENETOCLAX
     Indication: CHRONIC LYMPHOCYTIC LEUKAEMIA
     Dosage: 20 MG ON DAYS 22 TO 28 IN CYCLE 1 AS PER PROTOCOL?MOST RECENT DOSE ON 07/JUN/2019 (300 MG)
     Route: 048
     Dates: start: 20181212
  4. LIDAPRIM [SULFAMETROLE;TRIMETHOPRIM] [Concomitant]
     Route: 048
  5. ALLOPURINOL. [Concomitant]
     Active Substance: ALLOPURINOL
     Route: 048
  6. UNIDROX [Concomitant]
     Active Substance: PRULIFLOXACIN
     Route: 048
  7. MONOPOST [Concomitant]
     Active Substance: LATANOPROST
     Route: 065
  8. COSOPT [Concomitant]
     Active Substance: DORZOLAMIDE HYDROCHLORIDE\TIMOLOL MALEATE
     Route: 065
  9. VALACICLOVIR [Concomitant]
     Active Substance: VALACYCLOVIR HYDROCHLORIDE
     Route: 048
  10. AMPHO MORONAL [Concomitant]
     Active Substance: AMPHOTERICIN B
     Dosage: 6 PIP
     Route: 048

REACTIONS (1)
  - Staphylococcal sepsis [Recovered/Resolved]

NARRATIVE: CASE EVENT DATE: 20190607
